FAERS Safety Report 20850833 (Version 3)
Quarter: 2022Q2

REPORT INFORMATION
  Report Type: Spontaneous
  Country: US (occurrence: US)
  Receive Date: 20220519
  Receipt Date: 20220610
  Transmission Date: 20220720
  Serious: No
  Sender: FDA-Public Use
  Company Number: US-PFIZER INC-202200655307

PATIENT
  Age: 59 Year
  Sex: Male

DRUGS (1)
  1. ELELYSO [Suspect]
     Active Substance: TALIGLUCERASE ALFA
     Dosage: UNK

REACTIONS (3)
  - Throat irritation [Unknown]
  - Drug hypersensitivity [Unknown]
  - Somnolence [Unknown]
